FAERS Safety Report 5194863-2 (Version None)
Quarter: 2006Q4

REPORT INFORMATION
  Report Type: 
  Country: None (occurrence: None)
  Receive Date: 20061227
  Receipt Date: 20061215
  Transmission Date: 20070319
  Serious: Yes (Hospitalization)
  Sender: FDA-Public Use
  Company Number: 2006-03208

PATIENT
  Age: 66 Year
  Sex: Male
  Weight: 68 kg

DRUGS (2)
  1. VELCADE [Suspect]
     Indication: SMALL CELL LUNG CANCER METASTATIC
     Dosage: 1.60 MG/M2, INTRAVENOUS
     Route: 042
     Dates: start: 20061214
  2. TOPOTECAN                  (TOPOTECAN) [Suspect]
     Indication: SMALL CELL LUNG CANCER METASTATIC
     Dosage: 3.00 MG/M2, INTRAVENOUS
     Route: 042
     Dates: start: 20061214

REACTIONS (4)
  - HEART RATE INCREASED [None]
  - LYMPHADENOPATHY [None]
  - PLEURAL EFFUSION [None]
  - PULMONARY MASS [None]
